FAERS Safety Report 22225029 (Version 1)
Quarter: 2023Q2

REPORT INFORMATION
  Report Type: Spontaneous
  Country: RU (occurrence: None)
  Receive Date: 20230418
  Receipt Date: 20230418
  Transmission Date: 20230721
  Serious: Yes (Other)
  Sender: FDA-Public Use
  Company Number: 2023A088663

PATIENT
  Age: 21986 Day
  Sex: Female
  Weight: 45 kg

DRUGS (1)
  1. IMFINZI [Suspect]
     Active Substance: DURVALUMAB
     Indication: Non-small cell lung cancer stage III
     Route: 041
     Dates: start: 20230313, end: 20230313

REACTIONS (2)
  - Polyarthritis [Not Recovered/Not Resolved]
  - Skin toxicity [Recovering/Resolving]

NARRATIVE: CASE EVENT DATE: 20230313
